FAERS Safety Report 7876414-4 (Version None)
Quarter: 2011Q4

REPORT INFORMATION
  Report Type: 
  Country: None (occurrence: None)
  Receive Date: 20111031
  Receipt Date: 20111017
  Transmission Date: 20120403
  Serious: Yes (Hospitalization, Disabling, Other)
  Sender: FDA-Public Use
  Company Number: PHHY2011US67422

PATIENT
  Sex: Male
  Weight: 112 kg

DRUGS (27)
  1. AMLODIPINE BESYLATE [Concomitant]
     Dosage: 5 MG,
  2. MYCOPHENOLATE MOFETIL (CELLCEPT) [Concomitant]
     Dosage: 500 MG, BID
     Route: 048
  3. MYCOPHENOLATE MOFETIL (CELLCEPT) [Concomitant]
     Dosage: 600 MG, BID
     Route: 048
  4. DOCUSATE SODIUM [Concomitant]
     Dosage: 100 MG, UNK
     Route: 048
  5. EXFORGE [Concomitant]
     Dosage: 160 MG,
     Route: 048
  6. HYDROCODONE BITARTRATE [Concomitant]
     Dosage: 10 MG
     Route: 048
  7. HYDRALAZINE HCL [Concomitant]
     Dosage: 100 MG, BID
     Route: 048
  8. BUMETANIDE [Concomitant]
     Dosage: 1 MG, BID
  9. ACETAMINOPHEN [Concomitant]
     Dosage: 325 MG, UNK
     Route: 048
  10. OMEPRAZOLE [Concomitant]
     Dosage: 40 MG, ONCE A DAY
  11. PRILOSEC [Concomitant]
     Dosage: 20 MG, ONCE A DAY
  12. ZAROXOLYN [Concomitant]
     Dosage: 2.5 MG, UNK
     Route: 048
  13. NEORAL [Suspect]
     Indication: RENAL TRANSPLANT
     Dosage: 75 MG, BID
     Route: 048
     Dates: start: 20000311
  14. CALCIUM [Concomitant]
     Dosage: 650 MG, QD
  15. BL CALCIUM [Concomitant]
  16. FERROUS SULFATE TAB [Concomitant]
     Dosage: 325 MG, BID
     Route: 048
  17. HUMULIN R [Concomitant]
     Dosage: 100 UNIT/ML
  18. ASPIRIN [Concomitant]
     Dosage: 81 MG, ONCE A DAY
  19. ISOSORBIDE MONONITRATE [Concomitant]
     Dosage: 60 MG,
     Route: 048
  20. LIPITOR [Concomitant]
     Dosage: 10 MG, ONCE A DAY
     Route: 048
  21. MULTIVITAMIN [Concomitant]
     Dosage: UNK UKN, QD
  22. PREDNISONE [Concomitant]
     Dosage: 5 MG, ONCE A DAY
     Route: 048
  23. TERAZOSIN HCL [Concomitant]
     Dosage: Q
     Route: 048
  24. SIMVASTATIN [Concomitant]
     Dosage: 20 MG, UNK
     Route: 048
  25. CALCIUM [Concomitant]
     Dosage: 600 MG, ONCE A DAY
     Route: 048
  26. HUMULIN N [Concomitant]
     Dosage: 100 UNIT/ML
  27. TYLENOL-500 [Concomitant]
     Dosage: 650 MG, UNK

REACTIONS (17)
  - CARDIAC FAILURE CONGESTIVE [None]
  - PALPITATIONS [None]
  - DYSPNOEA [None]
  - PNEUMONIA [None]
  - COUGH [None]
  - HYPERTENSION [None]
  - FATIGUE [None]
  - WEIGHT INCREASED [None]
  - OEDEMA PERIPHERAL [None]
  - ORTHOPNOEA [None]
  - PULMONARY OEDEMA [None]
  - ASCITES [None]
  - NAUSEA [None]
  - BLOOD PRESSURE DECREASED [None]
  - CHEST DISCOMFORT [None]
  - BLOOD CREATININE INCREASED [None]
  - CORONARY ARTERY DISEASE [None]
